FAERS Safety Report 4363321-7 (Version None)
Quarter: 2004Q2

REPORT INFORMATION
  Report Type: 
  Country: None (occurrence: None)
  Receive Date: 20040519
  Receipt Date: 20040428
  Transmission Date: 20050107
  Serious: Yes (Hospitalization)
  Sender: FDA-Public Use
  Company Number: 04P-020-0257319-00

PATIENT
  Age: 20 Year
  Sex: Female
  Weight: 74 kg

DRUGS (6)
  1. MERIDIA [Suspect]
     Indication: WEIGHT CONTROL
     Dosage: 10 MG, 2 IN 1 D, PER ORAL
     Route: 048
     Dates: start: 20031201, end: 20040201
  2. ALOIN [Concomitant]
  3. ARTICHOKE [Concomitant]
  4. CAVA-CAVA [Concomitant]
  5. FEMPROPEX [Concomitant]
  6. DIAZEPAM [Concomitant]

REACTIONS (10)
  - COGNITIVE DISORDER [None]
  - DECREASED APPETITE [None]
  - DIPLOPIA [None]
  - HYPOTHERMIA [None]
  - INSOMNIA [None]
  - IRRITABILITY [None]
  - PANIC DISORDER [None]
  - PSYCHOTIC DISORDER [None]
  - SCHIZOPHRENIA [None]
  - THIRST [None]
